FAERS Safety Report 5965527-X (Version None)
Quarter: 2008Q4

REPORT INFORMATION
  Report Type: 
  Country: None (occurrence: None)
  Receive Date: 20081125
  Receipt Date: 20081117
  Transmission Date: 20090506
  Serious: Yes (Death)
  Sender: FDA-Public Use
  Company Number: US-ASTRAZENECA-2008UW12621

PATIENT
  Age: 22 Year
  Sex: Male

DRUGS (3)
  1. SEROQUEL [Suspect]
     Indication: POST-TRAUMATIC STRESS DISORDER
     Route: 048
  2. KLONOPIN [Concomitant]
  3. PAXIL [Concomitant]

REACTIONS (1)
  - DEATH [None]
